FAERS Safety Report 19679372 (Version 1)
Quarter: 2021Q3

REPORT INFORMATION
  Report Type: Spontaneous
  Country: US (occurrence: US)
  Receive Date: 20210809
  Receipt Date: 20210809
  Transmission Date: 20211014
  Serious: No
  Sender: FDA-Public Use
  Company Number: US-ASTRAZENECA-2021A617622

PATIENT
  Age: 31564 Day
  Sex: Female
  Weight: 53.5 kg

DRUGS (3)
  1. SYMBICORT [Suspect]
     Active Substance: BUDESONIDE\FORMOTEROL FUMARATE DIHYDRATE
     Indication: CHRONIC OBSTRUCTIVE PULMONARY DISEASE
     Dosage: 160/4.5 2 PUFFS TWO TIMES A DAY
     Route: 055
  2. SYMBICORT [Suspect]
     Active Substance: BUDESONIDE\FORMOTEROL FUMARATE DIHYDRATE
     Indication: CHRONIC OBSTRUCTIVE PULMONARY DISEASE
     Dosage: 2 PUFFS TWO TIMES A DAY (GENERIC )
     Route: 065
     Dates: start: 20210710
  3. SPIRIVA [Concomitant]
     Active Substance: TIOTROPIUM BROMIDE MONOHYDRATE
     Dosage: PATIENT TAKES SPIRIVA DAILY

REACTIONS (5)
  - Device malfunction [Unknown]
  - Off label use [Unknown]
  - Wrong technique in device usage process [Unknown]
  - Pulmonary congestion [Unknown]
  - Device use confusion [Unknown]

NARRATIVE: CASE EVENT DATE: 20210710
